FAERS Safety Report 7726006-2 (Version None)
Quarter: 2011Q3

REPORT INFORMATION
  Report Type: 
  Country: None (occurrence: None)
  Receive Date: 20110902
  Receipt Date: 20110829
  Transmission Date: 20111222
  Serious: Yes (Death, Hospitalization)
  Sender: FDA-Public Use
  Company Number: IL-ROCHE-796175

PATIENT
  Sex: Female
  Weight: 53 kg

DRUGS (6)
  1. METHOXY POLYETHYLENE GLYCOL-EPOETIN BETA [Suspect]
     Dosage: DOSE: 100 (UNIT UNSPECIFIED)
     Route: 042
     Dates: start: 20101227
  2. FUSID [Concomitant]
     Dosage: FREQUENCY:DAILY
     Route: 048
  3. FOLIC ACID [Concomitant]
     Indication: DIALYSIS
     Dosage: FREQUENCY: DAILY
     Route: 048
     Dates: start: 20081101
  4. CARTIA XT [Concomitant]
     Dosage: FREQUENCY: DAILY
     Route: 048
  5. DIMITONE [Concomitant]
     Dosage: FREQUENCY: DAILY
     Route: 048
  6. TRIBEMIN [Concomitant]
     Indication: DIALYSIS
     Dosage: FREQUENCY: DAILY
     Route: 048
     Dates: start: 20081101

REACTIONS (2)
  - PYREXIA [None]
  - DEATH [None]
